FAERS Safety Report 24598880 (Version 3)
Quarter: 2025Q3

REPORT INFORMATION
  Report Type: Spontaneous
  Country: US (occurrence: US)
  Receive Date: 20241110
  Receipt Date: 20250918
  Transmission Date: 20251021
  Serious: No
  Sender: SANOFI AVENTIS
  Company Number: US-SA-2024SA317140

PATIENT
  Age: 44 Year
  Sex: Male

DRUGS (1)
  1. DUPIXENT [Suspect]
     Active Substance: DUPILUMAB
     Indication: Nasal polyps
     Dosage: 300 MG, QOW
     Route: 058

REACTIONS (5)
  - Brain fog [Unknown]
  - Asthma [Unknown]
  - Dyspnoea [Unknown]
  - Nasopharyngitis [Unknown]
  - Dizziness [Unknown]

NARRATIVE: CASE EVENT DATE: 20241001
